FAERS Safety Report 8469312-9 (Version None)
Quarter: 2012Q2

REPORT INFORMATION
  Report Type: 
  Country: None (occurrence: None)
  Receive Date: 20120626
  Receipt Date: 20120625
  Transmission Date: 20120825
  Serious: Yes (Death, Other)
  Sender: FDA-Public Use
  Company Number: PHHY2012DE054285

PATIENT
  Sex: Male

DRUGS (5)
  1. CYCLOSPORINE [Suspect]
     Indication: PROPHYLAXIS AGAINST GRAFT VERSUS HOST DISEASE
  2. MYCOPHENOLATE MOFETIL [Concomitant]
     Indication: PROPHYLAXIS AGAINST GRAFT VERSUS HOST DISEASE
  3. TREOSULFAN [Concomitant]
     Dosage: 12 G/M2, TID
  4. ATG-FRESENIUS [Concomitant]
     Dosage: 20 MG/KG, TID
  5. FLUDARABINE PHOSPHATE [Concomitant]
     Dosage: 30 MG/M2, FIVE TIMES A DAY

REACTIONS (12)
  - ACUTE HEPATIC FAILURE [None]
  - MONOCLONAL GAMMOPATHY [None]
  - BLOOD IMMUNOGLOBULIN G INCREASED [None]
  - B-LYMPHOCYTE COUNT INCREASED [None]
  - NEUTROPHIL COUNT DECREASED [None]
  - HEPATIC ENCEPHALOPATHY [None]
  - GRAFT VERSUS HOST DISEASE IN LIVER [None]
  - POST TRANSPLANT LYMPHOPROLIFERATIVE DISORDER [None]
  - EPSTEIN-BARR VIRUS INFECTION [None]
  - HEPATITIS VIRAL [None]
  - GRAFT VERSUS HOST DISEASE IN SKIN [None]
  - RASH MACULAR [None]
